FAERS Safety Report 7575961-2 (Version None)
Quarter: 2011Q2

REPORT INFORMATION
  Report Type: 
  Country: None (occurrence: None)
  Receive Date: 20110628
  Receipt Date: 20110620
  Transmission Date: 20111010
  Serious: Yes (Hospitalization, Other)
  Sender: FDA-Public Use
  Company Number: JP-BRISTOL-MYERS SQUIBB COMPANY-15591993

PATIENT
  Age: 67 Year
  Sex: Female
  Weight: 48 kg

DRUGS (5)
  1. CISPLATIN [Suspect]
     Indication: GASTROOESOPHAGEAL CANCER
     Dosage: RECENT INF:10FEB11
     Route: 042
     Dates: start: 20101124, end: 20110210
  2. XELODA [Suspect]
     Indication: GASTROOESOPHAGEAL CANCER
     Dosage: ON DAY 1-15 RECENT DOSE:24FEB11 FORM:TABS
     Route: 048
     Dates: start: 20101124, end: 20110224
  3. LACTEC [Concomitant]
     Route: 042
  4. DECADRON [Concomitant]
     Route: 042
     Dates: start: 20110222, end: 20110222
  5. CETUXIMAB [Suspect]
     Indication: GASTROOESOPHAGEAL CANCER
     Dosage: RECENT INF:24FEB11 STRENGTH:5MG/ML NO OF INF:12
     Route: 042
     Dates: start: 20101124, end: 20110224

REACTIONS (18)
  - FATIGUE [None]
  - VOMITING [None]
  - NEOPLASM PROGRESSION [None]
  - PNEUMATOSIS INTESTINALIS [None]
  - DECREASED APPETITE [None]
  - SEPSIS [None]
  - RENAL FAILURE ACUTE [None]
  - BLOOD SODIUM DECREASED [None]
  - BLOOD MAGNESIUM DECREASED [None]
  - DISSEMINATED INTRAVASCULAR COAGULATION [None]
  - DIARRHOEA [None]
  - NAUSEA [None]
  - WHITE BLOOD CELL COUNT DECREASED [None]
  - NEUTROPHIL COUNT DECREASED [None]
  - GASTROOESOPHAGEAL CANCER [None]
  - RENAL FAILURE [None]
  - THROMBOCYTOPENIA [None]
  - BLOOD CALCIUM DECREASED [None]
